FAERS Safety Report 5418965-8 (Version None)
Quarter: 2007Q3

REPORT INFORMATION
  Report Type: 
  Country: None (occurrence: None)
  Receive Date: 20070817
  Receipt Date: 20070806
  Transmission Date: 20080115
  Serious: Yes (Other)
  Sender: FDA-Public Use
  Company Number: US-PFIZER INC-2007066071

PATIENT
  Sex: Female

DRUGS (15)
  1. LYRICA [Suspect]
     Indication: PAIN
  2. LYRICA [Suspect]
     Indication: NEUROPATHY
  3. LYRICA [Suspect]
     Indication: FIBROMYALGIA
  4. MILK THISTLE [Suspect]
     Indication: LIVER DISORDER
  5. ATENOLOL [Concomitant]
  6. AMITRIPTYLINE HCL [Concomitant]
     Dosage: DAILY DOSE:50MG
  7. TRAZODONE HCL [Concomitant]
     Dosage: TEXT:100 TO 150 MILLIGRAMS DAILY
  8. NASAL PREPARATIONS [Concomitant]
  9. ZYRTEC [Concomitant]
     Dosage: TEXT:HALF TABLET AT NIGHT
  10. ATARAX [Concomitant]
  11. VALIUM [Concomitant]
  12. ALL OTHER THERAPEUTIC PRODUCTS [Concomitant]
  13. IBUPROFEN TABLETS [Concomitant]
  14. OTHER RESPIRATORY SYSTEM PRODUCTS [Concomitant]
  15. LACTULOSE [Concomitant]

REACTIONS (12)
  - ASTHENIA [None]
  - CONSTIPATION [None]
  - DRUG EFFECT PROLONGED [None]
  - DRUG INEFFECTIVE [None]
  - FEELING ABNORMAL [None]
  - IMPAIRED WORK ABILITY [None]
  - PAIN IN EXTREMITY [None]
  - PITTING OEDEMA [None]
  - RESTLESS LEGS SYNDROME [None]
  - VISION BLURRED [None]
  - VISUAL ACUITY REDUCED [None]
  - WEIGHT INCREASED [None]
